FAERS Safety Report 5741426-3 (Version None)
Quarter: 2008Q2

REPORT INFORMATION
  Report Type: 
  Country: None (occurrence: None)
  Receive Date: 20080514
  Receipt Date: 20080505
  Transmission Date: 20081010
  Serious: Yes (Disabling)
  Sender: FDA-Public Use
  Company Number: 100#08#2008-02620

PATIENT
  Age: 50 Year
  Sex: Female

DRUGS (3)
  1. METHOTREXATE [Suspect]
     Indication: PSORIASIS
     Dosage: 5 MG WEEKLY ORAL
     Route: 048
  2. FOLIC ACID [Concomitant]
  3. CARBAMAZEPINE [Concomitant]

REACTIONS (3)
  - ANTICONVULSANT DRUG LEVEL BELOW THERAPEUTIC [None]
  - IMPAIRED DRIVING ABILITY [None]
  - VITH NERVE PARALYSIS [None]
